APPROVED DRUG PRODUCT: PREGABALIN
Active Ingredient: PREGABALIN
Strength: 330MG
Dosage Form/Route: TABLET, EXTENDED RELEASE;ORAL
Application: A211889 | Product #003
Applicant: SUN PHARMACEUTICAL INDUSTRIES LTD
Approved: Apr 13, 2021 | RLD: No | RS: No | Type: DISCN